FAERS Safety Report 8169537-6 (Version None)
Quarter: 2012Q1

REPORT INFORMATION
  Report Type: 
  Country: None (occurrence: None)
  Receive Date: 20120228
  Receipt Date: 20120220
  Transmission Date: 20120608
  Serious: Yes (Hospitalization, Other)
  Sender: FDA-Public Use
  Company Number: US-SANOFI-AVENTIS-2012SA011321

PATIENT
  Sex: Male

DRUGS (2)
  1. LANTUS [Suspect]
     Route: 058
  2. NOVOLOG [Suspect]
     Route: 065

REACTIONS (2)
  - RENAL DISORDER [None]
  - PANCREATIC DISORDER [None]
